FAERS Safety Report 8985221 (Version 2)
Quarter: 2013Q1

REPORT INFORMATION
  Report Type: Spontaneous
  Country: CA (occurrence: CA)
  Receive Date: 20121226
  Receipt Date: 20130104
  Transmission Date: 20140127
  Serious: Yes (Other)
  Sender: FDA-Public Use
  Company Number: CA-JNJFOC-20121207998

PATIENT
  Sex: Male

DRUGS (1)
  1. EXTRA STRENGTH TYLENOL EZ TABS [Suspect]
     Indication: PRODUCT USED FOR UNKNOWN INDICATION
     Dosage: 500MG/TABLET
     Route: 048

REACTIONS (4)
  - Delusion [Recovering/Resolving]
  - Anal haemorrhage [Recovering/Resolving]
  - Headache [Recovering/Resolving]
  - Abdominal pain upper [Recovering/Resolving]
